FAERS Safety Report 4437884-7 (Version None)
Quarter: 2004Q3

REPORT INFORMATION
  Report Type: 
  Country: None (occurrence: None)
  Receive Date: 20040831
  Receipt Date: 20040715
  Transmission Date: 20050211
  Serious: Yes (Hospitalization)
  Sender: FDA-Public Use
  Company Number: JP-MERCK-0407USA01678

PATIENT
  Age: 29 Year
  Sex: Male

DRUGS (7)
  1. PILOCARPINE HYDROCHLORIDE [Concomitant]
     Indication: PHOTOPHOBIA
     Route: 047
  2. TIMOPTIC [Suspect]
     Indication: GLAUCOMA CONGENITAL
     Route: 047
     Dates: start: 19940101
  3. TIMOPTIC [Suspect]
     Indication: OPTIC NERVE CUP/DISC RATIO INCREASED
     Route: 047
     Dates: start: 19940101
  4. RESCULA [Concomitant]
     Indication: OPTIC NERVE CUP/DISC RATIO INCREASED
     Route: 047
  5. RESCULA [Concomitant]
     Route: 047
     Dates: start: 19940101
  6. RESCULA [Concomitant]
     Indication: GLAUCOMA CONGENITAL
     Route: 047
  7. RESCULA [Concomitant]
     Route: 047
     Dates: start: 19940101

REACTIONS (4)
  - CORNEAL DEGENERATION [None]
  - CORNEAL EPITHELIUM DISORDER [None]
  - CORYNEBACTERIUM INFECTION [None]
  - POST PROCEDURAL COMPLICATION [None]
